FAERS Safety Report 6085752-X (Version None)
Quarter: 2009Q1

REPORT INFORMATION
  Report Type: 
  Country: None (occurrence: None)
  Receive Date: 20090217
  Receipt Date: 20080111
  Transmission Date: 20090719
  Serious: Yes (Other)
  Sender: FDA-Public Use
  Company Number: MC200800029

PATIENT
  Age: 74 Year
  Sex: Male
  Weight: 84 kg

DRUGS (7)
  1. ANGIOMAX [Suspect]
     Indication: PERCUTANEOUS CORONARY INTERVENTION
     Dosage: 12.8 ML (5MG/ML), BOLUS, IV BOLUS; 30 ML (5MG/ML), HR, IV BOLUS
     Route: 040
     Dates: start: 20080110, end: 20080110
  2. ANGIOMAX [Suspect]
     Indication: PERCUTANEOUS CORONARY INTERVENTION
     Dosage: 12.8 ML (5MG/ML), BOLUS, IV BOLUS; 30 ML (5MG/ML), HR, IV BOLUS
     Route: 040
     Dates: start: 20080110, end: 20080110
  3. ISOVUE-128 [Suspect]
     Indication: PERCUTANEOUS CORONARY INTERVENTION
     Dosage: 20 ML,  INTRAVENOUS
     Route: 042
     Dates: start: 20080110
  4. CIMETIDINE [Concomitant]
  5. BENADRYL [Concomitant]
  6. PREDNISONE TAB [Concomitant]
  7. ZANTAC 150 [Concomitant]

REACTIONS (1)
  - HYPERSENSITIVITY [None]
